FAERS Safety Report 4528498-9 (Version None)
Quarter: 2004Q4

REPORT INFORMATION
  Report Type: 
  Country: None (occurrence: None)
  Receive Date: 20041216
  Receipt Date: 20041014
  Transmission Date: 20050328
  Serious: No
  Sender: FDA-Public Use
  Company Number: US-BRISTOL-MYERS SQUIBB COMPANY-12732863

PATIENT
  Age: 47 Year
  Sex: Female
  Weight: 66 kg

DRUGS (2)
  1. KENALOG [Suspect]
     Indication: PAIN
     Route: 051
     Dates: start: 20040914, end: 20040914
  2. MULTI-VITAMIN [Concomitant]

REACTIONS (2)
  - CONTUSION [None]
  - RASH [None]
